FAERS Safety Report 10519631 (Version 1)
Quarter: 2014Q4

REPORT INFORMATION
  Report Type: Spontaneous
  Country: US (occurrence: None)
  Receive Date: 20141014
  Receipt Date: 20141014
  Transmission Date: 20150528
  Serious: No
  Sender: FDA-Public Use
  Company Number: None

PATIENT
  Age: 41 Year
  Sex: Male
  Weight: 131.6 kg

DRUGS (1)
  1. MORPHINE [Suspect]
     Active Substance: MORPHINE
     Indication: PAIN
     Dosage: 1ML OTHER IV
     Route: 042
     Dates: start: 20140625, end: 20140626

REACTIONS (2)
  - Rash maculo-papular [None]
  - Rash [None]

NARRATIVE: CASE EVENT DATE: 20140627
